FAERS Safety Report 11611800 (Version 1)
Quarter: 2015Q4

REPORT INFORMATION
  Report Type: Spontaneous
  Country: CN (occurrence: CN)
  Receive Date: 20151008
  Receipt Date: 20151008
  Transmission Date: 20160304
  Serious: Yes (Other)
  Sender: FDA-Public Use
  Company Number: CN-SUN PHARMACEUTICAL INDUSTRIES LTD-2015RR-103505

PATIENT

DRUGS (3)
  1. CAPECITABINE. [Suspect]
     Active Substance: CAPECITABINE
     Indication: COLORECTAL CANCER
     Dosage: 1000 MG/M2, BID D1-14, EVERY 21 DAYS
     Route: 065
  2. CAPECITABINE. [Suspect]
     Active Substance: CAPECITABINE
     Indication: COLORECTAL CANCER
     Dosage: 750 MG/M2, BID, D1-14, EVERY 21 DAYS
     Route: 048
  3. OXALIPLATIN. [Suspect]
     Active Substance: OXALIPLATIN
     Indication: COLORECTAL ADENOCARCINOMA
     Dosage: 130 MG/M2, EVERY 21 DAYS
     Route: 065

REACTIONS (4)
  - Hyperlipidaemia [Recovered/Resolved]
  - Neurotoxicity [Unknown]
  - Anaemia [Unknown]
  - Hypertriglyceridaemia [Recovered/Resolved]
